FAERS Safety Report 6509500-1 (Version None)
Quarter: 2009Q4

REPORT INFORMATION
  Report Type: 
  Country: None (occurrence: None)
  Receive Date: 20091217
  Receipt Date: 20091202
  Transmission Date: 20100525
  Serious: Yes (Hospitalization, Other)
  Sender: FDA-Public Use
  Company Number: THQ2009A05126

PATIENT
  Age: 57 Year
  Sex: Male

DRUGS (11)
  1. LANSOPRAZOLE [Suspect]
     Dosage: 30 MG
  2. CLOZARIL [Suspect]
     Indication: SCHIZOPHRENIA
     Dosage: PER ORAL
     Route: 048
     Dates: start: 19930309
  3. DIAZEPAM [Concomitant]
  4. CALCICHEW-D3 (COLECALCIFEROL, CALCIUM CARBONATE) [Concomitant]
  5. CALCIUM CARBONATE [Concomitant]
  6. LORAZEPAM [Concomitant]
  7. PARACETAMOL [Concomitant]
  8. SODIUM ALGINATE [Concomitant]
  9. SODIUM BICARBONATE [Concomitant]
  10. TETRABENAZINE [Concomitant]
  11. VENLAFAXINE HYDROCHLORIDE [Concomitant]

REACTIONS (15)
  - BLADDER DILATATION [None]
  - COMMUNICATION DISORDER [None]
  - CONFUSIONAL STATE [None]
  - CONSTIPATION [None]
  - COORDINATION ABNORMAL [None]
  - DEEP VEIN THROMBOSIS [None]
  - DEHYDRATION [None]
  - EATING DISORDER [None]
  - LEUKOPENIA [None]
  - LOWER RESPIRATORY TRACT INFECTION [None]
  - MALAISE [None]
  - MENTAL IMPAIRMENT [None]
  - MOBILITY DECREASED [None]
  - NEUROLEPTIC MALIGNANT SYNDROME [None]
  - SCHIZOPHRENIA, CATATONIC TYPE [None]
